FAERS Safety Report 6648393-9 (Version None)
Quarter: 2010Q1

REPORT INFORMATION
  Report Type: 
  Country: None (occurrence: None)
  Receive Date: 20100324
  Receipt Date: 20100319
  Transmission Date: 20100710
  Serious: Yes (Other)
  Sender: FDA-Public Use
  Company Number: CH-ROCHE-692128

PATIENT
  Age: 62 Year
  Sex: Male

DRUGS (2)
  1. BEVACIZUMAB [Suspect]
     Indication: COLORECTAL CANCER
     Route: 042
     Dates: start: 20090519, end: 20090812
  2. CAPECITABINE [Suspect]
     Indication: COLORECTAL CANCER
     Route: 048
     Dates: start: 20090519, end: 20090812

REACTIONS (3)
  - COUGH [None]
  - DYSPNOEA [None]
  - MALIGNANT NEOPLASM PROGRESSION [None]
